FAERS Safety Report 23176766 (Version 1)
Quarter: 2023Q4

REPORT INFORMATION
  Report Type: Spontaneous
  Country: US (occurrence: US)
  Receive Date: 20231113
  Receipt Date: 20231113
  Transmission Date: 20240110
  Serious: No
  Sender: FDA-Public Use
  Company Number: US-PERRIGO-23US002485

PATIENT

DRUGS (3)
  1. POLYETHYLENE GLYCOL 3350 [Suspect]
     Active Substance: POLYETHYLENE GLYCOL 3350
     Indication: Product used for unknown indication
     Dosage: APPROX. 34 G TO 51G 2 TO 3 DOSES, SINGLE
     Route: 048
     Dates: start: 20230217, end: 20230217
  2. POLYETHYLENE GLYCOL 3350 [Suspect]
     Active Substance: POLYETHYLENE GLYCOL 3350
     Dosage: APPROX. 68 G TO 153 G 8 TO 9 DOSES BID
     Route: 048
     Dates: start: 20230218, end: 20230218
  3. POLYETHYLENE GLYCOL 3350 [Suspect]
     Active Substance: POLYETHYLENE GLYCOL 3350
     Dosage: APPROX. 68G TO 85G 4 TO 5 DOSES, SINGLE
     Route: 048
     Dates: start: 20230219, end: 20230219

REACTIONS (2)
  - Overdose [Unknown]
  - Inappropriate schedule of product administration [Unknown]

NARRATIVE: CASE EVENT DATE: 20230217
